FAERS Safety Report 9798613 (Version 1)
Quarter: 2013Q4

REPORT INFORMATION
  Report Type: Spontaneous
  Country: FR (occurrence: None)
  Receive Date: 20131231
  Receipt Date: 20131231
  Transmission Date: 20140711
  Serious: Yes (Hospitalization)
  Sender: FDA-Public Use
  Company Number: 1979814

PATIENT
  Age: 59 Year
  Sex: Female

DRUGS (6)
  1. CARBOPLATIN [Suspect]
     Indication: LUNG CARCINOMA CELL TYPE UNSPECIFIED STAGE 0
     Dosage: 1 DAY
     Route: 041
     Dates: start: 20100823, end: 20100823
  2. AZANTAC [Concomitant]
  3. PACLITAXEL EBEWE [Concomitant]
  4. POLARAMINE [Concomitant]
  5. METHYLPREDNISOLONE MERCK [Concomitant]
  6. ZOPHREN [Concomitant]

REACTIONS (4)
  - Hyperhidrosis [None]
  - Oxygen saturation decreased [None]
  - Malaise [None]
  - Heart rate increased [None]
